FAERS Safety Report 8573005 (Version 3)
Quarter: 2013Q2

REPORT INFORMATION
  Report Type: Spontaneous
  Country: US (occurrence: US)
  Receive Date: 20120522
  Receipt Date: 20130528
  Transmission Date: 20140414
  Serious: Yes (Hospitalization)
  Sender: FDA-Public Use
  Company Number: US-BAYER-2012-049379

PATIENT
  Age: 51 Year
  Sex: Female
  Weight: 90.7 kg

DRUGS (11)
  1. YAZ [Suspect]
     Indication: MENOPAUSAL SYMPTOMS
     Dosage: UNK
     Dates: start: 201104, end: 201107
  2. GIANVI [Suspect]
     Dosage: UNK
     Dates: start: 201104, end: 201107
  3. CIPROFLOXACIN [Concomitant]
     Dosage: 250 MG, UNK
     Route: 048
     Dates: start: 20110421
  4. TENORETIC [Concomitant]
     Dosage: 50 MG, UNK
     Route: 048
     Dates: start: 20110701
  5. TENORETIC [Concomitant]
     Dosage: 25 MG, UNK
     Route: 048
     Dates: start: 20110701
  6. CYMBALTA [Concomitant]
     Dosage: 20 MG, UNK
     Route: 048
     Dates: start: 20110701
  7. VITAMIN B12 NOS [Concomitant]
     Dosage: UNK
     Route: 030
     Dates: start: 20110701
  8. BETAMETHASONE DIPROPIONATE [Concomitant]
     Dosage: 0.05 %, UNK
     Route: 061
     Dates: start: 20110701
  9. AMBIEN [Concomitant]
     Dosage: 10 MG, UNK
     Route: 048
     Dates: start: 20110715
  10. ATENOLOL [Concomitant]
     Indication: HYPERTENSION
     Dosage: UNK
     Dates: start: 2006
  11. ADVIL [Concomitant]
     Dosage: UNK UNK, PRN

REACTIONS (7)
  - Intracranial venous sinus thrombosis [None]
  - Injury [None]
  - Anxiety [None]
  - Pain [None]
  - General physical health deterioration [None]
  - Emotional distress [None]
  - Pain [None]
